FAERS Safety Report 8403195-8 (Version None)
Quarter: 2012Q2

REPORT INFORMATION
  Report Type: 
  Country: None (occurrence: None)
  Receive Date: 20120323
  Receipt Date: 20110407
  Transmission Date: 20120825
  Serious: Yes (Disabling)
  Sender: FDA-Public Use
  Company Number: 163-21880-11040995

PATIENT
  Age: 54 Year
  Sex: Male

DRUGS (6)
  1. ATENOLOL [Concomitant]
  2. AMIODARONE HCL [Concomitant]
  3. DEXAMETHASONE [Concomitant]
  4. REVLIMID [Suspect]
     Indication: MULTIPLE MYELOMA
     Dosage: 5 MG, 1 IN 1 D, PO
     Route: 048
     Dates: start: 20100701, end: 20110101
  5. ALLOPURINOL [Concomitant]
  6. SEROQUEL [Concomitant]

REACTIONS (1)
  - BLINDNESS [None]
